FAERS Safety Report 6383223-4 (Version None)
Quarter: 2009Q3

REPORT INFORMATION
  Report Type: 
  Country: None (occurrence: None)
  Receive Date: 20090929
  Receipt Date: 20090917
  Transmission Date: 20100115
  Serious: Yes (Other)
  Sender: FDA-Public Use
  Company Number: 2009AP003800

PATIENT
  Age: 56 Year
  Sex: Female

DRUGS (4)
  1. LAMOTRIGINE [Suspect]
     Indication: DEPRESSION
     Dosage: 25 MG;QD;PO; 50 MG;QD;PO; 100 MG;QD;PO
     Route: 048
  2. LAMOTRIGINE [Suspect]
     Indication: DEPRESSION
     Dosage: 25 MG;QD;PO; 50 MG;QD;PO; 100 MG;QD;PO
     Route: 048
  3. LAMOTRIGINE [Suspect]
     Indication: DEPRESSION
     Dosage: 25 MG;QD;PO; 50 MG;QD;PO; 100 MG;QD;PO
     Route: 048
     Dates: start: 20090701
  4. LAMOTRIGINE [Suspect]
     Indication: DEPRESSION
     Dosage: 0.5 TAB;QD;PO
     Route: 048
     Dates: end: 20090909

REACTIONS (8)
  - APHAGIA [None]
  - EMOTIONAL DISORDER [None]
  - HALLUCINATIONS, MIXED [None]
  - INSOMNIA [None]
  - SOMNOLENCE [None]
  - SUICIDAL IDEATION [None]
  - TACHYCARDIA [None]
  - TREMOR [None]
